FAERS Safety Report 9250687 (Version 2)
Quarter: 2013Q3

REPORT INFORMATION
  Report Type: Spontaneous
  Country: US (occurrence: US)
  Receive Date: 20130424
  Receipt Date: 20130710
  Transmission Date: 20140515
  Serious: No
  Sender: FDA-Public Use
  Company Number: US-ASTRAZENECA-2013SE27528

PATIENT
  Sex: Female
  Weight: 91.2 kg

DRUGS (14)
  1. NEXIUM [Suspect]
     Route: 048
  2. PRILOSEC [Suspect]
     Route: 048
  3. PROTONIX [Concomitant]
     Dates: start: 20120810
  4. PROTONIX [Concomitant]
     Dates: start: 20120511
  5. ZANTAC [Concomitant]
  6. COMDEGEN ESTROGEN [Concomitant]
     Dosage: DAILY
  7. CRESTOR [Concomitant]
     Route: 048
     Dates: start: 20120511
  8. METOPROLOL [Concomitant]
     Route: 048
     Dates: start: 20120511
  9. AMBIEN [Concomitant]
     Route: 048
     Dates: start: 20120511
  10. ASPIRIN [Concomitant]
     Dates: start: 20120511
  11. LISINOPRIL [Concomitant]
     Route: 048
     Dates: start: 20120511
  12. AMLODIPINE [Concomitant]
     Route: 048
     Dates: start: 20120511
  13. LEVOTHYROXINE [Concomitant]
     Dates: start: 20110802
  14. AMOXICILLIN [Concomitant]
     Dates: start: 20110907

REACTIONS (9)
  - Angina pectoris [Unknown]
  - Osteoporosis [Unknown]
  - Bone disorder [Unknown]
  - Multiple fractures [Unknown]
  - Cataract [Unknown]
  - Arthritis [Unknown]
  - Hypothyroidism [Unknown]
  - Vitamin D deficiency [Unknown]
  - Chronic obstructive pulmonary disease [Unknown]
